FAERS Safety Report 9303493 (Version 1)
Quarter: 2013Q2

REPORT INFORMATION
  Report Type: Spontaneous
  Country: US (occurrence: US)
  Receive Date: 20130522
  Receipt Date: 20130522
  Transmission Date: 20140414
  Serious: No
  Sender: FDA-Public Use
  Company Number: US-PFIZER INC-2013152020

PATIENT
  Age: 50 Year
  Sex: Male
  Weight: 107 kg

DRUGS (2)
  1. VIAGRA [Suspect]
     Indication: SUBSTANCE USE
     Dosage: 100 MG TWO TO THREE TIMES A WEEK
  2. ASPIRIN [Concomitant]
     Indication: PAIN
     Dosage: UNK, AS NEEDED

REACTIONS (3)
  - Drug ineffective [Unknown]
  - Product quality issue [Unknown]
  - Intentional drug misuse [Unknown]
